FAERS Safety Report 4823974-3 (Version None)
Quarter: 2005Q4

REPORT INFORMATION
  Report Type: 
  Country: None (occurrence: None)
  Receive Date: 20051109
  Receipt Date: 20051031
  Transmission Date: 20060501
  Serious: Yes (Other)
  Sender: FDA-Public Use
  Company Number: CH-JNJFOC-20051002923

PATIENT

DRUGS (5)
  1. REMICADE [Suspect]
     Indication: ANKYLOSING SPONDYLITIS
     Dosage: 3RD INFUSION
     Route: 042
  2. TILUR [Concomitant]
     Indication: ANKYLOSING SPONDYLITIS
     Route: 048
  3. NEXIUM [Concomitant]
     Route: 048
  4. AUGMENTIN '125' [Concomitant]
     Route: 048
     Dates: start: 20050926, end: 20051003
  5. AUGMENTIN '125' [Concomitant]
     Indication: NASOPHARYNGITIS
     Route: 048
     Dates: start: 20050926, end: 20051003

REACTIONS (1)
  - AGRANULOCYTOSIS [None]
